FAERS Safety Report 10242317 (Version 1)
Quarter: 2014Q2

REPORT INFORMATION
  Report Type: Spontaneous
  Country: US (occurrence: US)
  Receive Date: 20140617
  Receipt Date: 20140617
  Transmission Date: 20141212
  Serious: Yes (Life-Threatening, Hospitalization, Other)
  Sender: FDA-Public Use
  Company Number: US-BAYER-2014-087676

PATIENT
  Age: 89 Year
  Sex: Female

DRUGS (3)
  1. AVELOX [Suspect]
     Indication: GROIN INFECTION
     Dosage: 400 MG, QD
     Route: 048
     Dates: start: 20140406, end: 20140406
  2. TRAMADOL [Concomitant]
     Dosage: 50 MG, QD
  3. TYLENOL [PARACETAMOL] [Concomitant]
     Dosage: 500 MG, QD

REACTIONS (4)
  - Drug hypersensitivity [Recovering/Resolving]
  - Cardiac arrest [Recovering/Resolving]
  - Hypotension [Recovering/Resolving]
  - Loss of consciousness [Recovering/Resolving]
